FAERS Safety Report 21171340 (Version 1)
Quarter: 2022Q3

REPORT INFORMATION
  Report Type: Spontaneous
  Country: GB (occurrence: GB)
  Receive Date: 20220804
  Receipt Date: 20220804
  Transmission Date: 20221027
  Serious: Yes (Other)
  Sender: FDA-Public Use
  Company Number: None

PATIENT
  Sex: Female

DRUGS (2)
  1. LOSARTAN [Suspect]
     Active Substance: LOSARTAN
     Indication: Product used for unknown indication
     Dosage: 100MG DAILY, ONE AND A HALF YEARS
     Route: 065
  2. AMLODIPINE [Concomitant]
     Active Substance: AMLODIPINE BESYLATE
     Indication: Product used for unknown indication
     Route: 065

REACTIONS (9)
  - Trichorrhexis [Unknown]
  - Alopecia [Unknown]
  - Chromaturia [Unknown]
  - Weight decreased [Unknown]
  - Hypotension [Unknown]
  - Hypertension [Unknown]
  - Epistaxis [Unknown]
  - Malaise [Recovered/Resolved]
  - Somnolence [Unknown]
